FAERS Safety Report 24630022 (Version 1)
Quarter: 2024Q4

REPORT INFORMATION
  Report Type: Spontaneous
  Country: US (occurrence: US)
  Receive Date: 20241118
  Receipt Date: 20241118
  Transmission Date: 20250114
  Serious: No
  Sender: GRIFOLS
  Company Number: US-IGSA-BIG0028908

PATIENT
  Age: 64 Year
  Sex: Female
  Weight: 81.6 kg

DRUGS (2)
  1. XEMBIFY [Suspect]
     Active Substance: HUMAN IMMUNOGLOBULIN G
     Indication: Immunodeficiency
     Dosage: 10 GRAM, Q.WK.
     Route: 058
     Dates: start: 202404
  2. XEMBIFY [Suspect]
     Active Substance: HUMAN IMMUNOGLOBULIN G
     Dosage: 1 GRAM, Q.WK.
     Route: 058
     Dates: start: 202404

REACTIONS (6)
  - Dizziness [Recovered/Resolved]
  - Pyrexia [Not Recovered/Not Resolved]
  - Erythema [Recovered/Resolved]
  - Fatigue [Recovered/Resolved]
  - Abdominal distension [Recovered/Resolved]
  - Weight increased [Recovered/Resolved]

NARRATIVE: CASE EVENT DATE: 20240401
